FAERS Safety Report 8246437-4 (Version None)
Quarter: 2012Q1

REPORT INFORMATION
  Report Type: 
  Country: None (occurrence: None)
  Receive Date: 20120330
  Receipt Date: 20120326
  Transmission Date: 20120608
  Serious: Yes (Other)
  Sender: FDA-Public Use
  Company Number: US-AMGEN-USASP2012019227

PATIENT
  Sex: Male

DRUGS (1)
  1. EPOGEN [Suspect]
     Indication: ANAEMIA OF CHRONIC DISEASE
     Dosage: 20000 IU, UNK
     Dates: end: 20120216

REACTIONS (2)
  - ANAEMIA [None]
  - DRUG INEFFECTIVE [None]
